FAERS Safety Report 11654959 (Version 1)
Quarter: 2015Q4

REPORT INFORMATION
  Report Type: Report from Study
  Country: US (occurrence: US)
  Receive Date: 20151023
  Receipt Date: 20151023
  Transmission Date: 20160304
  Serious: Yes (Hospitalization)
  Sender: FDA-Public Use
  Company Number: US-ABBVIE-15P-163-1483614-00

PATIENT
  Age: 12 Year
  Sex: Male

DRUGS (1)
  1. HUMIRA [Suspect]
     Active Substance: ADALIMUMAB
     Indication: CROHN^S DISEASE
     Route: 058
     Dates: start: 20150211

REACTIONS (9)
  - Unevaluable event [Not Recovered/Not Resolved]
  - Proctalgia [Unknown]
  - Haematochezia [Unknown]
  - Headache [Not Recovered/Not Resolved]
  - Intestinal mass [Unknown]
  - Infantile genetic agranulocytosis [Unknown]
  - Arthralgia [Not Recovered/Not Resolved]
  - Intestinal fistula [Unknown]
  - Anal abscess [Not Recovered/Not Resolved]

NARRATIVE: CASE EVENT DATE: 2015
